FAERS Safety Report 19817044 (Version 1)
Quarter: 2021Q3

REPORT INFORMATION
  Report Type: Spontaneous
  Country: IN (occurrence: IN)
  Receive Date: 20210910
  Receipt Date: 20210910
  Transmission Date: 20211014
  Serious: Yes (Hospitalization, Other)
  Sender: FDA-Public Use
  Company Number: IN-INSUD PHARMA-2108IN00968

PATIENT

DRUGS (3)
  1. NUVESSA [Suspect]
     Active Substance: METRONIDAZOLE
     Indication: HEPATIC AMOEBIASIS
     Dosage: CONTINUED TO TAKE ORAL METRONIDAZOLE FOR MORE THAN 4 WEEKS
     Route: 048
  2. NUVESSA [Suspect]
     Active Substance: METRONIDAZOLE
     Dosage: 800 MG THREE TIMES A DAY
     Route: 048
  3. NUVESSA [Suspect]
     Active Substance: METRONIDAZOLE
     Dosage: 2500 MG/DAY IN DIVIDED DOSES
     Route: 042

REACTIONS (11)
  - Neurotoxicity [Recovered/Resolved]
  - Nystagmus [Recovered/Resolved]
  - Dysarthria [Recovered/Resolved]
  - Vomiting [Recovered/Resolved]
  - Toxic encephalopathy [Recovered/Resolved]
  - Neuropathy peripheral [Recovered/Resolved]
  - Ataxia [Recovered/Resolved]
  - Dysdiadochokinesis [Recovered/Resolved]
  - Hypoaesthesia [Recovered/Resolved]
  - Sensory loss [Recovered/Resolved]
  - Gait disturbance [Recovered/Resolved]
